FAERS Safety Report 5929786-1 (Version None)
Quarter: 2008Q4

REPORT INFORMATION
  Report Type: 
  Country: None (occurrence: None)
  Receive Date: 20081024
  Receipt Date: 20081016
  Transmission Date: 20090506
  Serious: Yes (Hospitalization)
  Sender: FDA-Public Use
  Company Number: US-JNJFOC-20081004644

PATIENT
  Sex: Male

DRUGS (7)
  1. RISPERDAL CONSTA [Suspect]
     Indication: SCHIZOPHRENIA
     Route: 030
  2. ADVAIR DISKUS 100/50 [Concomitant]
     Indication: MULTIPLE ALLERGIES
     Route: 065
  3. ALBUTERAL [Concomitant]
     Indication: ASTHMA
     Route: 065
  4. DEPAKOTE [Concomitant]
     Indication: BIPOLAR DISORDER
     Route: 065
  5. COGENTIN [Concomitant]
     Indication: PROPHYLAXIS
     Route: 065
  6. PRILOSEC [Concomitant]
     Indication: GASTRIC DISORDER
     Route: 065
  7. SEROQUEL [Concomitant]
     Indication: BIPOLAR DISORDER
     Route: 048

REACTIONS (2)
  - DEVICE OCCLUSION [None]
  - SELF INJURIOUS BEHAVIOUR [None]
